FAERS Safety Report 11230563 (Version 1)
Quarter: 2015Q3

REPORT INFORMATION
  Report Type: Spontaneous
  Country: GB (occurrence: GB)
  Receive Date: 20150701
  Receipt Date: 20150701
  Transmission Date: 20151125
  Serious: Yes (Other)
  Sender: FDA-Public Use
  Company Number: GB-MERCK-1506GBR015032

PATIENT

DRUGS (1)
  1. JANUVIA [Suspect]
     Active Substance: SITAGLIPTIN PHOSPHATE
     Dosage: UNK

REACTIONS (4)
  - Incorrect route of drug administration [Unknown]
  - Wrong technique in product usage process [Unknown]
  - Gastrointestinal tube insertion [Unknown]
  - Cerebrovascular accident [Unknown]
